FAERS Safety Report 23079362 (Version 2)
Quarter: 2024Q1

REPORT INFORMATION
  Report Type: Spontaneous
  Country: US (occurrence: US)
  Receive Date: 20231018
  Receipt Date: 20240212
  Transmission Date: 20240410
  Serious: Yes (Hospitalization)
  Sender: FDA-Public Use
  Company Number: US-PFIZER INC-202300330775

PATIENT
  Age: 13 Year
  Sex: Female

DRUGS (2)
  1. OXBRYTA [Suspect]
     Active Substance: VOXELOTOR
     Dosage: 1500 MG, 1X/DAY
     Route: 048
  2. OXBRYTA [Suspect]
     Active Substance: VOXELOTOR
     Dosage: [300 MG. TABLETS FOR ORAL SUSPENSION, PREPARE 5 TABLETS, ONCE DAILY, ORALLY]
     Route: 048
     Dates: start: 20230704

REACTIONS (3)
  - Product dose omission issue [Not Recovered/Not Resolved]
  - COVID-19 [Unknown]
  - Influenza [Unknown]
